FAERS Safety Report 8067882-6 (Version None)
Quarter: 2012Q1

REPORT INFORMATION
  Report Type: 
  Country: None (occurrence: None)
  Receive Date: 20120124
  Receipt Date: 20110830
  Transmission Date: 20120608
  Serious: No
  Sender: FDA-Public Use
  Company Number: US-AMGEN-USASP2011044277

PATIENT
  Age: 81 Year
  Sex: Female

DRUGS (9)
  1. PROLIA [Suspect]
     Indication: OSTEOPOROSIS POSTMENOPAUSAL
     Dosage: 60 MG, Q6MO
     Dates: start: 20110728
  2. MIRALAX [Concomitant]
  3. PREVACID [Concomitant]
  4. SYMBICORT [Concomitant]
  5. COUMADIN [Concomitant]
     Indication: PHLEBITIS
     Dates: start: 19920101
  6. SPIRIVA [Concomitant]
  7. SYNTHROID [Concomitant]
  8. LASIX [Concomitant]
  9. VITAMIN D                          /00318501/ [Concomitant]

REACTIONS (6)
  - JOINT SWELLING [None]
  - VARICOSE VEIN [None]
  - VENOUS INSUFFICIENCY [None]
  - PAIN IN EXTREMITY [None]
  - STASIS DERMATITIS [None]
  - OEDEMA PERIPHERAL [None]
